FAERS Safety Report 7275926-4 (Version None)
Quarter: 2011Q1

REPORT INFORMATION
  Report Type: 
  Country: None (occurrence: None)
  Receive Date: 20110204
  Receipt Date: 20110130
  Transmission Date: 20110831
  Serious: Yes (Other)
  Sender: FDA-Public Use
  Company Number: A0873270A

PATIENT
  Sex: Male

DRUGS (18)
  1. IMDUR [Concomitant]
  2. PROMACTA [Suspect]
     Indication: IDIOPATHIC THROMBOCYTOPENIC PURPURA
  3. WINRHO SD [Concomitant]
     Indication: IDIOPATHIC THROMBOCYTOPENIC PURPURA
  4. ZOCOR [Concomitant]
  5. PHENYTOIN [Concomitant]
  6. NITROGLYCERIN [Concomitant]
  7. NEPHROCAPS [Concomitant]
  8. PREDNISONE TAPER [Concomitant]
  9. SYNTHROID [Concomitant]
  10. ZEMPLAR [Concomitant]
  11. CORTICOSTEROIDS [Concomitant]
     Indication: IDIOPATHIC THROMBOCYTOPENIC PURPURA
  12. PANTOPRAZOLE [Concomitant]
  13. INSULIN LISPRO [Concomitant]
  14. DIGOXIN [Concomitant]
  15. COLACE [Concomitant]
  16. PHOSLO [Concomitant]
  17. METOPROLOL TARTRATE [Concomitant]
  18. LANTUS [Concomitant]

REACTIONS (5)
  - LIVER FUNCTION TEST ABNORMAL [None]
  - CHOLELITHIASIS [None]
  - CARDIAC FAILURE CONGESTIVE [None]
  - GASTROINTESTINAL HAEMORRHAGE [None]
  - CHOLECYSTITIS [None]
